FAERS Safety Report 24785994 (Version 1)
Quarter: 2024Q4

REPORT INFORMATION
  Report Type: Spontaneous
  Country: US (occurrence: US)
  Receive Date: 20241229
  Receipt Date: 20241229
  Transmission Date: 20250114
  Serious: Yes (Hospitalization, Other)
  Sender: DR REDDYS
  Company Number: US-DRL-USA-LIT/USA/24/0019155

PATIENT
  Age: 33 Year
  Sex: Male

DRUGS (6)
  1. TADALAFIL [Suspect]
     Active Substance: TADALAFIL
     Indication: Heritable pulmonary arterial hypertension
     Dates: start: 2013
  2. TREPROSTINIL [Suspect]
     Active Substance: TREPROSTINIL
     Indication: Heritable pulmonary arterial hypertension
     Route: 042
     Dates: start: 2021
  3. TREPROSTINIL [Suspect]
     Active Substance: TREPROSTINIL
     Route: 042
  4. MACITENTAN [Suspect]
     Active Substance: MACITENTAN
     Indication: Heritable pulmonary arterial hypertension
     Dates: start: 2013
  5. AMBRISENTAN [Suspect]
     Active Substance: AMBRISENTAN
     Indication: Heritable pulmonary arterial hypertension
     Dates: start: 2017
  6. SELEXIPAG [Suspect]
     Active Substance: SELEXIPAG
     Indication: Heritable pulmonary arterial hypertension
     Dates: start: 2017

REACTIONS (6)
  - Right ventricular failure [Unknown]
  - Syncope [Unknown]
  - Pericardial effusion [Unknown]
  - Pulmonary oedema [Unknown]
  - Pulmonary veno-occlusive disease [Unknown]
  - Condition aggravated [Unknown]
